FAERS Safety Report 21350447 (Version 1)
Quarter: 2022Q3

REPORT INFORMATION
  Report Type: Spontaneous
  Country: JP (occurrence: JP)
  Receive Date: 20220919
  Receipt Date: 20220919
  Transmission Date: 20221026
  Serious: Yes (Hospitalization, Other)
  Sender: FDA-Public Use
  Company Number: JP-JNJFOC-20220932877

PATIENT
  Age: 67 Year
  Sex: Male

DRUGS (3)
  1. PALIPERIDONE PALMITATE [Suspect]
     Active Substance: PALIPERIDONE PALMITATE
     Indication: Product used for unknown indication
     Route: 030
     Dates: start: 2017
  2. PALIPERIDONE PALMITATE [Suspect]
     Active Substance: PALIPERIDONE PALMITATE
  3. PALIPERIDONE PALMITATE [Suspect]
     Active Substance: PALIPERIDONE PALMITATE

REACTIONS (7)
  - Hospitalisation [Unknown]
  - Blood creatine phosphokinase increased [Recovering/Resolving]
  - Fall [Unknown]
  - Incontinence [Unknown]
  - Tremor [Unknown]
  - Hypokinesia [Unknown]
  - C-reactive protein increased [Recovering/Resolving]
